FAERS Safety Report 11162982 (Version 1)
Quarter: 2015Q2

REPORT INFORMATION
  Report Type: Spontaneous
  Country: MX (occurrence: None)
  Receive Date: 20150602
  Receipt Date: 20150602
  Transmission Date: 20150821
  Serious: No
  Sender: FDA-Public Use
  Company Number: 1505MEX015131

PATIENT
  Age: 57 Year
  Sex: Male
  Weight: 96 kg

DRUGS (4)
  1. ALMETEC-CO (HYDROCHLOROTHIAZIDE, OLMESARTAN MEDOXOMIL) [Concomitant]
  2. FOSAMAX PLUS (ALENDRONATE SODIUM (+) CHOLECALCIFEROL) [Concomitant]
  3. ARCOXIA (ETORICOXIB) [Concomitant]
  4. CEDAX [Suspect]
     Active Substance: CEFTIBUTEN DIHYDRATE
     Indication: URINARY TRACT INFECTION
     Route: 048
     Dates: start: 20150519, end: 20150525

REACTIONS (1)
  - Diarrhoea [None]

NARRATIVE: CASE EVENT DATE: 20150521
